FAERS Safety Report 21898266 (Version 1)
Quarter: 2023Q1

REPORT INFORMATION
  Report Type: Spontaneous
  Country: US (occurrence: None)
  Receive Date: 20230122
  Receipt Date: 20230122
  Transmission Date: 20230418
  Serious: No
  Sender: FDA-Public Use
  Company Number: None

PATIENT
  Sex: Female
  Weight: 103.87 kg

DRUGS (8)
  1. IBRANCE [Suspect]
     Active Substance: PALBOCICLIB
     Indication: Breast cancer female
     Dosage: FREQUENCY : DAILY;  21 DAYS ON, 7 DAYS OFF?
     Route: 048
     Dates: end: 20230112
  2. ANASTROZOLE [Concomitant]
     Active Substance: ANASTROZOLE
  3. ANTACID [Concomitant]
     Active Substance: ALUMINUM HYDROXIDE\CALCIUM CARBONATE\DIMETHICONE\MAGNESIUM HYDROXIDE
  4. IBUPROFEN [Concomitant]
     Active Substance: IBUPROFEN
  5. HAIR/SKIN/NAILS FORMULA [Concomitant]
  6. METHIMAZOLE PANTOPRAZOLE [Concomitant]
  7. PROPRANOLOL [Concomitant]
     Active Substance: PROPRANOLOL HYDROCHLORIDE
  8. VITAMIN D [Concomitant]
     Active Substance: VITAMIN D NOS

REACTIONS (2)
  - Neoplasm progression [None]
  - Therapy cessation [None]
